FAERS Safety Report 14505082 (Version 1)
Quarter: 2018Q1

REPORT INFORMATION
  Report Type: Spontaneous
  Country: NO (occurrence: NO)
  Receive Date: 20180208
  Receipt Date: 20180208
  Transmission Date: 20180509
  Serious: Yes (Hospitalization)
  Sender: FDA-Public Use
  Company Number: NO-AUROBINDO-AUR-APL-2018-005240

PATIENT
  Age: 38 Year
  Sex: Male
  Weight: 86.6 kg

DRUGS (3)
  1. NYCOPLUS FERRO [Concomitant]
     Indication: BLOOD IRON DECREASED
     Dosage: 1 DF, UNK
     Route: 048
  2. OLANZAPINE TABLET [Suspect]
     Active Substance: OLANZAPINE
     Indication: SCHIZOPHRENIA
     Dosage: 10 MG, TWO TIMES A DAY
     Route: 048
     Dates: start: 1999
  3. VALLERGAN [Concomitant]
     Active Substance: TRIMEPRAZINE
     Indication: INSOMNIA
     Dosage: 10 MG, DAILY
     Route: 048

REACTIONS (2)
  - Congestive cardiomyopathy [Not Recovered/Not Resolved]
  - Cardiac failure [Not Recovered/Not Resolved]

NARRATIVE: CASE EVENT DATE: 2017
